FAERS Safety Report 18932739 (Version 1)
Quarter: 2021Q1

REPORT INFORMATION
  Report Type: Spontaneous
  Country: US (occurrence: US)
  Receive Date: 20210223
  Receipt Date: 20210223
  Transmission Date: 20210420
  Serious: Yes (Other)
  Sender: FDA-Public Use
  Company Number: None

PATIENT
  Age: 70 Year
  Sex: Male

DRUGS (1)
  1. SILDENAFIL. [Suspect]
     Active Substance: SILDENAFIL
     Indication: ERECTILE DYSFUNCTION
     Route: 048
     Dates: start: 20210213, end: 20210213

REACTIONS (9)
  - Therapeutic product effect delayed [None]
  - Trismus [None]
  - Disturbance in attention [None]
  - Flushing [None]
  - Visual impairment [None]
  - Vision blurred [None]
  - Flank pain [None]
  - Muscle spasms [None]
  - Muscle twitching [None]

NARRATIVE: CASE EVENT DATE: 20210213
